FAERS Safety Report 9336863 (Version 2)
Quarter: 2013Q3

REPORT INFORMATION
  Report Type: Spontaneous
  Country: US (occurrence: US)
  Receive Date: 20130607
  Receipt Date: 20130828
  Transmission Date: 20140515
  Serious: Yes (Hospitalization, Congenital Anomaly, Other)
  Sender: FDA-Public Use
  Company Number: US-PFIZER INC-2013170901

PATIENT
  Sex: Female

DRUGS (5)
  1. ZOLOFT [Suspect]
     Indication: DEPRESSION
     Dosage: UNK
     Route: 064
  2. ZOLOFT [Suspect]
     Indication: ANXIETY
  3. PRENATAL VITAMINS [Concomitant]
     Dosage: UNK
     Route: 064
  4. TYLENOL [Concomitant]
     Dosage: UNK
     Route: 064
  5. ASPIRIN [Concomitant]
     Dosage: UNK
     Route: 064

REACTIONS (12)
  - Maternal exposure during pregnancy [Unknown]
  - Congenital heart valve disorder [Unknown]
  - Patent ductus arteriosus [Unknown]
  - Skull malformation [Unknown]
  - Dysmorphism [Unknown]
  - Atrial septal defect [Unknown]
  - Strabismus [Unknown]
  - Craniosynostosis [Unknown]
  - Pulmonary hypertension [Unknown]
  - Congenital heart valve disorder [Unknown]
  - Pulmonary valve stenosis congenital [Unknown]
  - Premature baby [Unknown]
